FAERS Safety Report 19526163 (Version 1)
Quarter: 2021Q3

REPORT INFORMATION
  Report Type: Spontaneous
  Country: US (occurrence: US)
  Receive Date: 20210713
  Receipt Date: 20210713
  Transmission Date: 20211014
  Serious: No
  Sender: FDA-Public Use
  Company Number: None

PATIENT
  Age: 50 Year
  Sex: Female
  Weight: 87.09 kg

DRUGS (1)
  1. LEVOFLOXACIN (LEVOFLOXACIN 750MG TAB) [Suspect]
     Active Substance: LEVOFLOXACIN
     Indication: SINUSITIS
     Dates: start: 20210425, end: 20210428

REACTIONS (8)
  - Peripheral swelling [None]
  - Pain in extremity [None]
  - Gait disturbance [None]
  - Hypoaesthesia [None]
  - Fasciitis [None]
  - Nasal congestion [None]
  - Connective tissue inflammation [None]
  - Rhinorrhoea [None]

NARRATIVE: CASE EVENT DATE: 20210425
